FAERS Safety Report 9049685 (Version 5)
Quarter: 2014Q1

REPORT INFORMATION
  Report Type: Report from Study
  Country: GB (occurrence: GB)
  Receive Date: 20130205
  Receipt Date: 20140121
  Transmission Date: 20141002
  Serious: No
  Sender: FDA-Public Use
  Company Number: GB-009507513-1302GBR000840

PATIENT
  Age: 78 Year
  Sex: Female
  Weight: 62 kg

DRUGS (4)
  1. ALENDRONATE SODIUM [Suspect]
     Indication: OSTEOPOROSIS
     Dosage: 70 MG, QW
     Route: 048
     Dates: start: 20120712
  2. MK-0000 (281) [Suspect]
     Indication: OSTEOPOROSIS
     Dosage: UNK
     Route: 048
     Dates: start: 20120919
  3. ADCAL (CALCIUM CARBONATE (+) CALCIUM GLUCONATE (+) CALCIUM LACTATE (+) [Suspect]
     Indication: OSTEOPOROSIS
     Dosage: UNK, QD
     Dates: start: 20120712
  4. LANSOPRAZOLE [Concomitant]
     Indication: GASTROINTESTINAL DISORDER
     Dosage: UNK, QD
     Dates: start: 20100203

REACTIONS (2)
  - Fall [Unknown]
  - Fall [Unknown]
